FAERS Safety Report 16850531 (Version 1)
Quarter: 2019Q3

REPORT INFORMATION
  Report Type: Spontaneous
  Country: US (occurrence: US)
  Receive Date: 20190925
  Receipt Date: 20190925
  Transmission Date: 20191005
  Serious: No
  Sender: FDA-Public Use
  Company Number: US-UPSHER-SMITH LABORATORIES, LLC-2018USL00571

PATIENT
  Sex: Female
  Weight: 58.96 kg

DRUGS (14)
  1. VITAMIN E [Concomitant]
     Active Substance: .ALPHA.-TOCOPHEROL
  2. BACLOFEN. [Suspect]
     Active Substance: BACLOFEN
     Indication: MUSCLE SPASMS
     Dosage: 20 MG, 4X/DAY
     Route: 048
     Dates: start: 201809, end: 20181106
  3. VITAMIN B [Concomitant]
     Active Substance: VITAMIN B
  4. CARAFATE [Concomitant]
     Active Substance: SUCRALFATE
     Dosage: UNK, 2X/DAY
  5. UNSPECIFIED STOOL SOFTENER [Concomitant]
  6. VITAMIN B3 [Concomitant]
     Active Substance: NIACIN
  7. OMEPRAZOLE. [Concomitant]
     Active Substance: OMEPRAZOLE
     Dosage: 40 MG, 1X/DAY
  8. VITAMIN D3 [Concomitant]
     Active Substance: CHOLECALCIFEROL
  9. CRANBERRY PILL [Concomitant]
     Active Substance: CRANBERRY
     Dosage: 2 CAPSULES, 1X/DAY
  10. DAILY CENTRUM SILVER [Concomitant]
  11. ATENOLOL. [Concomitant]
     Active Substance: ATENOLOL
  12. UNSPECIFIED SLEEPING PILL [Concomitant]
     Active Substance: UNSPECIFIED INGREDIENT
  13. UNSPECIFIED CHOLESTEROL PILL [Concomitant]
  14. IRON [Concomitant]
     Active Substance: IRON

REACTIONS (4)
  - Onychoclasis [Unknown]
  - Dry skin [Recovering/Resolving]
  - Abdominal discomfort [Recovered/Resolved]
  - Pruritus [Recovered/Resolved]

NARRATIVE: CASE EVENT DATE: 2018
